FAERS Safety Report 9497282 (Version 3)
Quarter: 2013Q4

REPORT INFORMATION
  Report Type: Report from Study
  Country: DE (occurrence: DE)
  Receive Date: 20130904
  Receipt Date: 20131125
  Transmission Date: 20140711
  Serious: Yes (Death, Hospitalization)
  Sender: FDA-Public Use
  Company Number: PHHY2013DE072793

PATIENT
  Sex: Female
  Weight: 67.9 kg

DRUGS (7)
  1. ICL670A [Suspect]
     Indication: MYELODYSPLASTIC SYNDROME
     Dosage: 500 MG, UNK
     Route: 048
  2. HYPNOREX [Concomitant]
     Indication: DEPRESSION
     Dosage: 800 MG, PER DAY
     Route: 048
     Dates: start: 20070503
  3. CITALOPRAM [Concomitant]
     Indication: DEPRESSION
     Dosage: 80 MG, PER DAY
     Route: 048
     Dates: start: 20120515
  4. TAMOXIFEN [Concomitant]
     Indication: BREAST CANCER METASTATIC
     Dosage: 20 MG, PER DAY
     Route: 048
     Dates: start: 20120217
  5. PANTOPRAZOLE [Concomitant]
     Indication: REFLUX GASTRITIS
     Dosage: 80 MG, PER DAY
     Route: 048
     Dates: start: 20120515
  6. TAVOR (FLUCONAZOLE) [Concomitant]
     Indication: SLEEP DISORDER
     Dosage: 0,5, UNK
     Dates: start: 20130518
  7. OMEPRAZOLE [Concomitant]
     Indication: DYSPEPSIA
     Dosage: 40 MG, PER DAY
     Route: 048
     Dates: start: 20120515

REACTIONS (8)
  - Pneumonia [Fatal]
  - Prerenal failure [Recovered/Resolved]
  - Dehydration [Unknown]
  - Urine output decreased [Unknown]
  - Diarrhoea [Recovered/Resolved]
  - Nausea [Recovered/Resolved]
  - Vomiting [Recovered/Resolved]
  - Hypokalaemia [Recovered/Resolved]
